FAERS Safety Report 8340191-3 (Version None)
Quarter: 2012Q2

REPORT INFORMATION
  Report Type: 
  Country: None (occurrence: None)
  Receive Date: 20120507
  Receipt Date: 20120425
  Transmission Date: 20120825
  Serious: Yes (Death, Life-Threatening, Hospitalization, Other)
  Sender: FDA-Public Use
  Company Number: US-BRISTOL-MYERS SQUIBB COMPANY-16349409

PATIENT
  Age: 70 Year
  Sex: Female

DRUGS (28)
  1. YERVOY [Suspect]
     Indication: METASTATIC MALIGNANT MELANOMA
     Dosage: TOTAL DOSE: 3 DOSES
     Route: 042
     Dates: start: 20111004, end: 20111115
  2. CHOLESTYRAMINE [Concomitant]
  3. DILTIAZEM [Concomitant]
     Route: 048
  4. FLUTICASONE FUROATE [Concomitant]
  5. COUMADIN [Concomitant]
  6. VITAMIN D [Concomitant]
  7. LEVOTHYROXINE SODIUM [Concomitant]
  8. HYDROCHLOROTHIAZIDE [Concomitant]
     Route: 048
  9. EVISTA [Concomitant]
  10. LASIX [Concomitant]
  11. SALMETEROL [Concomitant]
  12. INSULIN [Concomitant]
  13. METOPROLOL TARTRATE [Concomitant]
     Route: 048
  14. OMEPRAZOLE [Concomitant]
  15. HYZAAR [Concomitant]
  16. IRON SULFATETHIAMIN COMPOUND TAB [Concomitant]
  17. LOSARTAN POTASSIUM [Concomitant]
     Dosage: 100/25MG
  18. MULTI-VITAMIN [Concomitant]
  19. REGLAN [Concomitant]
  20. PRILOSEC [Concomitant]
     Route: 048
  21. ASPIRIN [Concomitant]
  22. LOPERAMIDE [Concomitant]
  23. ZOLPIDEM [Concomitant]
     Dosage: AT NIGHT PRN
     Route: 048
  24. PREDNISONE [Concomitant]
  25. ADVAIR DISKUS 100/50 [Concomitant]
     Dosage: 250/50
  26. TOPROL-XL [Concomitant]
  27. CALCIUM CARBONATE [Concomitant]
  28. CARTIA XT [Concomitant]

REACTIONS (7)
  - PULMONARY EMBOLISM [None]
  - HYPOTENSION [None]
  - INTESTINAL PERFORATION [None]
  - LYMPHADENOPATHY MEDIASTINAL [None]
  - COLITIS [None]
  - RESPIRATORY FAILURE [None]
  - GASTROINTESTINAL HAEMORRHAGE [None]
